FAERS Safety Report 7563928-X (Version None)
Quarter: 2011Q2

REPORT INFORMATION
  Report Type: 
  Country: None (occurrence: None)
  Receive Date: 20110622
  Receipt Date: 20110613
  Transmission Date: 20111010
  Serious: Yes (Other)
  Sender: FDA-Public Use
  Company Number: CA-UCBSA-035212

PATIENT

DRUGS (5)
  1. KEPPRA [Suspect]
     Route: 048
  2. FRISIUM [Concomitant]
     Route: 048
  3. VALPROATE SODIUM [Concomitant]
     Route: 048
  4. LAMICTAL [Concomitant]
     Route: 048
  5. ZOCOR [Concomitant]
     Route: 048

REACTIONS (1)
  - HEPATIC CIRRHOSIS [None]
